FAERS Safety Report 23235494 (Version 3)
Quarter: 2024Q1

REPORT INFORMATION
  Report Type: Spontaneous
  Country: US (occurrence: US)
  Receive Date: 20231128
  Receipt Date: 20240208
  Transmission Date: 20240410
  Serious: Yes (Other)
  Sender: FDA-Public Use
  Company Number: US-PFIZER INC-PV202300192206

PATIENT
  Age: 74 Year
  Sex: Female
  Weight: 73.2 kg

DRUGS (5)
  1. IBRANCE [Suspect]
     Active Substance: PALBOCICLIB
     Indication: Breast cancer metastatic
     Dosage: TAKE 1 TAB (125 MG) DAILY ON DAYS 1-21 OF A 28-DAY CYCLE
     Route: 048
     Dates: start: 20230207
  2. IBRANCE [Suspect]
     Active Substance: PALBOCICLIB
     Indication: Metastases to lung
  3. ALPRAZOLAM [Concomitant]
     Active Substance: ALPRAZOLAM
     Indication: Anxiety
     Dosage: TAKE 1 TABLET UP TO EVERY 8 HOURS
     Route: 048
     Dates: start: 20230116
  4. LETROZOLE [Concomitant]
     Active Substance: LETROZOLE
     Indication: Breast cancer metastatic
     Dosage: UNK
  5. TRAMADOL [Concomitant]
     Active Substance: TRAMADOL\TRAMADOL HYDROCHLORIDE
     Indication: Pain
     Dosage: UNK UNK, 1X/DAY

REACTIONS (5)
  - Neuropathy peripheral [Unknown]
  - Lymphoedema [Not Recovered/Not Resolved]
  - Muscle spasms [Unknown]
  - Fall [Unknown]
  - Contusion [Unknown]
